FAERS Safety Report 8494308-0 (Version None)
Quarter: 2012Q3

REPORT INFORMATION
  Report Type: 
  Country: None (occurrence: None)
  Receive Date: 20120709
  Receipt Date: 20120703
  Transmission Date: 20120928
  Serious: Yes (Other)
  Sender: FDA-Public Use
  Company Number: FR-US-EMD SERONO, INC.-7141622

PATIENT
  Age: 48 Year
  Sex: Female

DRUGS (1)
  1. REBIF [Suspect]
     Indication: MULTIPLE SCLEROSIS
     Route: 058
     Dates: start: 20120202, end: 20120618

REACTIONS (2)
  - INJECTION SITE REACTION [None]
  - DRUG-INDUCED LIVER INJURY [None]
